FAERS Safety Report 12635907 (Version 2)
Quarter: 2016Q3

REPORT INFORMATION
  Report Type: Spontaneous
  Country: CO (occurrence: CO)
  Receive Date: 20160809
  Receipt Date: 20160908
  Transmission Date: 20161109
  Serious: Yes (Death, Life-Threatening, Other)
  Sender: FDA-Public Use
  Company Number: CO-BAXTER-2016BAX040773

PATIENT
  Age: 64 Year
  Sex: Male

DRUGS (5)
  1. FENTANYL. [Suspect]
     Active Substance: FENTANYL
     Indication: ANAESTHESIA PROCEDURE
     Route: 042
     Dates: start: 20160711, end: 20160711
  2. TRANEXAMIC ACID. [Suspect]
     Active Substance: TRANEXAMIC ACID
     Indication: HAEMOSTASIS
     Route: 042
     Dates: start: 20160711, end: 20160711
  3. BUPIVACAINA [Suspect]
     Active Substance: BUPIVACAINE
     Indication: LOCAL ANAESTHESIA
     Route: 042
     Dates: start: 20160711, end: 20160711
  4. GLICINA AL 1,5% EN AGUA [Suspect]
     Active Substance: GLYCINE
     Indication: IRRIGATION THERAPY
     Dosage: 6 BAGS
     Route: 043
     Dates: start: 20160711, end: 20160711
  5. MIDAZOLAM [Suspect]
     Active Substance: MIDAZOLAM\MIDAZOLAM HYDROCHLORIDE
     Indication: SEDATIVE THERAPY
     Route: 042
     Dates: start: 20160711, end: 20160711

REACTIONS (6)
  - Tachycardia [Unknown]
  - Hypotension [Unknown]
  - Haemodynamic instability [Unknown]
  - Sensory disturbance [Unknown]
  - Cardiac arrest [Fatal]
  - General physical health deterioration [Unknown]

NARRATIVE: CASE EVENT DATE: 20160711
